FAERS Safety Report 6433011-5 (Version None)
Quarter: 2009Q4

REPORT INFORMATION
  Report Type: 
  Country: None (occurrence: None)
  Receive Date: 20091109
  Receipt Date: 20091101
  Transmission Date: 20100525
  Serious: Yes (Other)
  Sender: FDA-Public Use
  Company Number: CA-ELI_LILLY_AND_COMPANY-CA200911000246

PATIENT
  Age: 67 Year
  Sex: Female
  Weight: 174 kg

DRUGS (2)
  1. XIGRIS [Suspect]
     Indication: SEPSIS
     Dosage: UNK, UNK
     Route: 042
     Dates: start: 20091031, end: 20091101
  2. XIGRIS [Suspect]
     Route: 042
     Dates: start: 20091101, end: 20091101

REACTIONS (1)
  - INTERNATIONAL NORMALISED RATIO INCREASED [None]
